FAERS Safety Report 16420264 (Version 5)
Quarter: 2022Q3

REPORT INFORMATION
  Report Type: Spontaneous
  Country: US (occurrence: US)
  Receive Date: 20190612
  Receipt Date: 20220706
  Transmission Date: 20221027
  Serious: Yes (Other)
  Sender: FDA-Public Use
  Company Number: US-PFIZER INC-2019241865

PATIENT
  Age: 38 Year
  Sex: Male
  Weight: 79.365 kg

DRUGS (2)
  1. NICOTROL [Suspect]
     Active Substance: NICOTINE
     Indication: Smoking cessation therapy
     Dosage: UNK
  2. SUBOXONE [Concomitant]
     Active Substance: BUPRENORPHINE HYDROCHLORIDE\NALOXONE HYDROCHLORIDE
     Indication: Psychosocial support
     Dosage: 16 MG, 2X/DAY
     Route: 048

REACTIONS (3)
  - Drug dependence [Unknown]
  - Dyspnoea [Unknown]
  - Prescribed overdose [Unknown]
